FAERS Safety Report 24571415 (Version 1)
Quarter: 2024Q4

REPORT INFORMATION
  Report Type: Spontaneous
  Country: GB (occurrence: GB)
  Receive Date: 20241101
  Receipt Date: 20241101
  Transmission Date: 20250115
  Serious: Yes (Other)
  Sender: TEVA
  Company Number: GB-MHRA-TPP4879567C9420756YC1729762195867

PATIENT
  Age: 31 Year
  Sex: Female
  Weight: 74 kg

DRUGS (5)
  1. CLINDAMYCIN [Suspect]
     Active Substance: CLINDAMYCIN
     Indication: Ill-defined disorder
     Dosage: 300MG CAPSULES
     Route: 065
     Dates: start: 20241024
  2. DIAZEPAM [Concomitant]
     Active Substance: DIAZEPAM
     Indication: Ill-defined disorder
     Dosage: TAKE ONE TABLET  30-45MINUTES BEFORE FLIGHT
     Route: 065
     Dates: start: 20240821, end: 20241012
  3. AMOXICILLIN [Concomitant]
     Active Substance: AMOXICILLIN
     Indication: Ill-defined disorder
     Dosage: TIME INTERVAL: 0.33333333 DAYS: TAKE ONE 3 TIMES/DAY FOR 7 DAYS, DAILY DOSE: 3 DOSAGE FORM
     Dates: start: 20241008, end: 20241015
  4. TRANEXAMIC ACID [Concomitant]
     Active Substance: TRANEXAMIC ACID
     Indication: Ill-defined disorder
     Dosage: 1G THREE TIMES DAILY AS LONG AS NEEDED FOR UP T...
     Dates: start: 20231012
  5. NORETHINDRONE [Concomitant]
     Active Substance: NORETHINDRONE
     Indication: Ill-defined disorder
     Dosage: TIME INTERVAL: 0.33333333 DAYS: ONE TDS, DAILY DOSE:3 DOSAGE FORM
     Route: 065
     Dates: start: 20240808, end: 20240907

REACTIONS (1)
  - Heart rate irregular [Recovered/Resolved]

NARRATIVE: CASE EVENT DATE: 20241024
